FAERS Safety Report 5460671-8 (Version None)
Quarter: 2007Q3

REPORT INFORMATION
  Report Type: 
  Country: None (occurrence: None)
  Receive Date: 20070919
  Receipt Date: 20070912
  Transmission Date: 20080115
  Serious: Yes (Death)
  Sender: FDA-Public Use
  Company Number: AT-ABBOTT-06P-009-0351658-00

PATIENT
  Age: 25 Year
  Sex: Male
  Weight: 53 kg

DRUGS (9)
  1. KALETRA [Suspect]
     Indication: HIV INFECTION
     Route: 048
     Dates: start: 20050225, end: 20060403
  2. LAMIVUDINE [Concomitant]
     Indication: HIV INFECTION
     Route: 048
     Dates: start: 20050225, end: 20060403
  3. ABACAVIR [Concomitant]
     Indication: HIV INFECTION
     Route: 048
     Dates: start: 20050225, end: 20060403
  4. BACTRIM [Concomitant]
     Indication: PROPHYLAXIS
     Route: 048
     Dates: start: 20050225, end: 20060403
  5. FOLIC ACID [Concomitant]
     Indication: DRUG USE FOR UNKNOWN INDICATION
     Route: 048
     Dates: start: 20050225, end: 20060403
  6. CLARITHROMYCIN [Concomitant]
     Indication: PNEUMONIA
     Route: 048
     Dates: start: 20051010, end: 20060403
  7. ETHAMBUTOL DIHYDROCHLORIDE [Concomitant]
     Indication: PNEUMONIA
     Route: 048
     Dates: start: 20051010, end: 20060403
  8. ETHAMBUTOL DIHYDROCHLORIDE [Concomitant]
     Indication: ATYPICAL MYCOBACTERIAL INFECTION
  9. MIRTABENE [Concomitant]
     Indication: DEPRESSION
     Route: 048
     Dates: start: 20051209, end: 20060403

REACTIONS (4)
  - DEPRESSION [None]
  - MYCOBACTERIAL INFECTION [None]
  - MYCOBACTERIUM AVIUM COMPLEX INFECTION [None]
  - TREATMENT NONCOMPLIANCE [None]
